FAERS Safety Report 5088834-4 (Version None)
Quarter: 2006Q3

REPORT INFORMATION
  Report Type: 
  Country: None (occurrence: None)
  Receive Date: 20060824
  Receipt Date: 20060824
  Transmission Date: 20061208
  Serious: Yes (Hospitalization)
  Sender: FDA-Public Use
  Company Number: None

PATIENT
  Age: 64 Year
  Sex: Male
  Weight: 65.7716 kg

DRUGS (3)
  1. FUDR [Suspect]
     Indication: OESOPHAGEAL CARCINOMA
     Dosage: 7898 MG   WEEKLY X 3   IV
     Route: 042
     Dates: start: 20060525, end: 20060601
  2. DOCETAXEL  25 MG/M2 [Suspect]
     Dosage: 45 MG  WEEKLY X 3  IV
     Route: 042
     Dates: start: 20060525, end: 20060601
  3. LEUCOVORIN CALCIUM [Suspect]

REACTIONS (6)
  - ASTHENIA [None]
  - BACTERIA STOOL IDENTIFIED [None]
  - BLOOD POTASSIUM DECREASED [None]
  - CANDIDIASIS [None]
  - DIARRHOEA [None]
  - FATIGUE [None]
